FAERS Safety Report 5977566-3 (Version None)
Quarter: 2008Q4

REPORT INFORMATION
  Report Type: 
  Country: None (occurrence: None)
  Receive Date: 20081201
  Receipt Date: 20081201
  Transmission Date: 20090506
  Serious: Yes (Other)
  Sender: FDA-Public Use
  Company Number: None

PATIENT
  Age: 46 Year
  Sex: Female
  Weight: 70.7611 kg

DRUGS (2)
  1. PRISTIQ [Suspect]
     Indication: DEPRESSION
     Dosage: 30 MG Q HS PO
     Route: 048
     Dates: start: 20080801, end: 20081010
  2. PRISTIQ [Suspect]
     Indication: DRUG TOXICITY
     Dosage: 30 MG Q HS PO
     Route: 048
     Dates: start: 20080801, end: 20081010

REACTIONS (4)
  - DIZZINESS [None]
  - HYPERTENSION [None]
  - PRESYNCOPE [None]
  - SLEEP DISORDER [None]
